FAERS Safety Report 5602050-6 (Version None)
Quarter: 2008Q1

REPORT INFORMATION
  Report Type: 
  Country: None (occurrence: None)
  Receive Date: 20080122
  Receipt Date: 20080122
  Transmission Date: 20080703
  Serious: Yes (Life-Threatening, Hospitalization, Other)
  Sender: FDA-Public Use
  Company Number: None

PATIENT
  Age: 45 Year
  Sex: Female
  Weight: 90.7194 kg

DRUGS (2)
  1. OXCARBAZEPINE 300 CVS/PHARMACY [Suspect]
     Indication: EPILEPSY
     Dosage: TAKE 1 1/2 TWICE DAILY PO
     Route: 048
     Dates: start: 20071106, end: 20080101
  2. OXCARBAZEPINE 600 CVS/PHARMACY [Suspect]
     Indication: EPILEPSY
     Dosage: TAKE 1 TABLET TWICE DAILY PO
     Route: 048
     Dates: start: 20071202, end: 20080121

REACTIONS (4)
  - CONFUSIONAL STATE [None]
  - CONVULSION [None]
  - MALAISE [None]
  - PHARMACEUTICAL PRODUCT COMPLAINT [None]
